FAERS Safety Report 9563282 (Version 1)
Quarter: 2013Q3

REPORT INFORMATION
  Report Type: Report from Study
  Country: CA (occurrence: CA)
  Receive Date: 20130927
  Receipt Date: 20130927
  Transmission Date: 20140515
  Serious: Yes (Other)
  Sender: FDA-Public Use
  Company Number: CA-ABBVIE-13P-028-1150780-00

PATIENT
  Age: 38 Year
  Sex: Female

DRUGS (2)
  1. HUMIRA [Suspect]
     Indication: CROHN^S DISEASE
     Route: 058
  2. UNKNOWN [Concomitant]
     Indication: PRODUCT USED FOR UNKNOWN INDICATION

REACTIONS (6)
  - Splenic rupture [Unknown]
  - Syncope [Recovered/Resolved]
  - Abdominal pain upper [Unknown]
  - Urinary tract infection [Recovering/Resolving]
  - Weight decreased [Unknown]
  - Fall [Recovered/Resolved]
